FAERS Safety Report 9405494 (Version 1)
Quarter: 2013Q3

REPORT INFORMATION
  Report Type: Spontaneous
  Country: CA (occurrence: CA)
  Receive Date: 20130717
  Receipt Date: 20130717
  Transmission Date: 20140515
  Serious: Yes (Other)
  Sender: FDA-Public Use
  Company Number: CA-B.I. PHARMACEUTICALS,INC./RIDGEFIELD-2013-BI-20687GD

PATIENT
  Age: 68 Year
  Sex: Male

DRUGS (4)
  1. FLOMAX [Suspect]
     Indication: PROSTATISM
  2. PREDNISONE [Suspect]
     Indication: MESENTERITIS
     Dosage: 60 MG
  3. CALCIUM [Suspect]
  4. VITAMIN E [Suspect]

REACTIONS (6)
  - Mesenteritis [Unknown]
  - Protein-losing gastroenteropathy [Unknown]
  - Oedema peripheral [Unknown]
  - Asthenia [Unknown]
  - Tremor [Unknown]
  - Mood altered [Unknown]
